FAERS Safety Report 7277776-1 (Version None)
Quarter: 2011Q1

REPORT INFORMATION
  Report Type: 
  Country: None (occurrence: None)
  Receive Date: 20110207
  Receipt Date: 20100823
  Transmission Date: 20110831
  Serious: No
  Sender: FDA-Public Use
  Company Number: A0875179A

PATIENT
  Age: 58 Year
  Sex: Female

DRUGS (4)
  1. NEXIUM [Concomitant]
  2. OLUX E [Suspect]
     Indication: BURNING SENSATION
     Dosage: 1APP TWICE PER DAY
     Route: 061
     Dates: start: 20100720
  3. DIPYRIDAMOLE [Concomitant]
  4. PENTOXIL [Concomitant]

REACTIONS (7)
  - ILL-DEFINED DISORDER [None]
  - ERYTHEMA [None]
  - HYPERSENSITIVITY [None]
  - FEELING HOT [None]
  - NECK PAIN [None]
  - PHOTOSENSITIVITY REACTION [None]
  - BURNING SENSATION [None]
